FAERS Safety Report 10363966 (Version 2)
Quarter: 2014Q3

REPORT INFORMATION
  Report Type: Spontaneous
  Country: US (occurrence: US)
  Receive Date: 20140805
  Receipt Date: 20140917
  Transmission Date: 20150326
  Serious: Yes (Other)
  Sender: FDA-Public Use
  Company Number: US-ALLERGAN-1416941US

PATIENT
  Age: 51 Year
  Sex: Male

DRUGS (1)
  1. LUMIGAN [Suspect]
     Active Substance: BIMATOPROST
     Indication: PIGMENTARY GLAUCOMA
     Dosage: 2 GTT, QHS
     Route: 047
     Dates: start: 20140227, end: 20140305

REACTIONS (5)
  - Dizziness [Recovered/Resolved with Sequelae]
  - Fall [Unknown]
  - Back injury [Unknown]
  - Foot fracture [Unknown]
  - Syncope [Recovered/Resolved with Sequelae]
